FAERS Safety Report 9852422 (Version 2)
Quarter: 2014Q1

REPORT INFORMATION
  Report Type: Spontaneous
  Country: US (occurrence: None)
  Receive Date: 20140127
  Receipt Date: 20140210
  Transmission Date: 20141002
  Serious: Yes (Hospitalization)
  Sender: FDA-Public Use
  Company Number: AUR-APL-2014-00516

PATIENT
  Age: 68 Year
  Sex: Female
  Weight: 58 kg

DRUGS (11)
  1. PIPERACILLIN, TAZOBACTAM [Suspect]
     Indication: CELLULITIS
     Dosage: 13.5 (3.375, 1 IN 6 HR)
     Route: 042
  2. LOSARTAN (LOSARTAN) [Concomitant]
  3. CHLORTHALIDONE (CHLORTHALIDONE) [Concomitant]
  4. CARVEDILOL (CARVEDILOL) [Concomitant]
  5. CHOLECALCIFEROL (CHOLECALCIFEROL) [Concomitant]
  6. FORMOTEROL W.BUDESONIDE (FORMOTEROL W/BUDESONIDE) [Concomitant]
  7. MONTELUKAST (MONTELUKAST) [Concomitant]
  8. ASPIRIN (ACETYLSALICYLIC ACID) [Concomitant]
  9. CLOPIDOGREL (CLOPIDOGREL) [Concomitant]
  10. IRON SULFATE (FERROUS SULFATE) [Concomitant]
  11. NORMAL SALINE (SODIUM CHLORIDE) [Concomitant]

REACTIONS (11)
  - Cellulitis [None]
  - Tachycardia [None]
  - Hypotension [None]
  - Hypoxia [None]
  - Cellulitis staphylococcal [None]
  - Metabolic acidosis [None]
  - Oedema peripheral [None]
  - Tubulointerstitial nephritis [None]
  - Oedema peripheral [None]
  - Hypovolaemia [None]
  - Haemoglobin decreased [None]
